FAERS Safety Report 24802262 (Version 1)
Quarter: 2025Q1

REPORT INFORMATION
  Report Type: Spontaneous
  Country: US (occurrence: None)
  Receive Date: 20250103
  Receipt Date: 20250103
  Transmission Date: 20250409
  Serious: No
  Sender: REDHILL BIOPHARMA INC.
  Company Number: US-ARIS GLOBAL-RDH202409-000045

PATIENT
  Sex: Male

DRUGS (1)
  1. AEMCOLO [Suspect]
     Active Substance: RIFAMYCIN
     Indication: Product used for unknown indication
     Route: 065

REACTIONS (1)
  - Potentiating drug interaction [Unknown]
